FAERS Safety Report 24439807 (Version 1)
Quarter: 2024Q4

REPORT INFORMATION
  Report Type: Report from Study
  Country: US (occurrence: US)
  Receive Date: 20241015
  Receipt Date: 20241015
  Transmission Date: 20250114
  Serious: Yes (Other)
  Sender: BEIGENE
  Company Number: US-BEIGENE-BGN-2024-016125

PATIENT

DRUGS (1)
  1. BRUKINSA [Suspect]
     Active Substance: ZANUBRUTINIB
     Indication: Chronic lymphocytic leukaemia
     Dosage: 320 MILLIGRAM DAILY
     Route: 048
     Dates: start: 20240810

REACTIONS (5)
  - Renal haemorrhage [Unknown]
  - Rash [Unknown]
  - Rash pruritic [Unknown]
  - Blood urine present [Unknown]
  - Petechiae [Unknown]
